FAERS Safety Report 21657009 (Version 1)
Quarter: 2022Q4

REPORT INFORMATION
  Report Type: Spontaneous
  Country: DE (occurrence: DE)
  Receive Date: 20221129
  Receipt Date: 20221129
  Transmission Date: 20230113
  Serious: Yes (Other)
  Sender: FDA-Public Use
  Company Number: DE-MYLANLABS-2022M1132877

PATIENT
  Sex: Male

DRUGS (4)
  1. TAMBOCOR [Interacting]
     Active Substance: FLECAINIDE ACETATE
     Indication: Arrhythmia
     Dosage: UNK
     Route: 065
  2. LEVETIRACETAM [Interacting]
     Active Substance: LEVETIRACETAM
     Indication: Epilepsy
     Dosage: 500 MILLIGRAM, BID(500 MG/ ML MORNING AND EVENING)
     Route: 065
  3. LEVETIRACETAM [Interacting]
     Active Substance: LEVETIRACETAM
     Dosage: 250 MILLIGRAM
     Route: 065
  4. LEVETIRACETAM [Interacting]
     Active Substance: LEVETIRACETAM
     Dosage: 125 MILLIGRAM
     Route: 065

REACTIONS (6)
  - Epilepsy [Unknown]
  - Aggression [Unknown]
  - Suicidal ideation [Unknown]
  - Confusional state [Unknown]
  - Drug tolerance decreased [Unknown]
  - Drug interaction [Unknown]

NARRATIVE: CASE EVENT DATE: 20220101
